FAERS Safety Report 17013497 (Version 1)
Quarter: 2019Q4

REPORT INFORMATION
  Report Type: Spontaneous
  Country: IT (occurrence: IT)
  Receive Date: 20191110
  Receipt Date: 20191110
  Transmission Date: 20200122
  Serious: Yes (Hospitalization, Other)
  Sender: FDA-Public Use
  Company Number: NVSC2019IT026650

PATIENT
  Age: 43 Year
  Sex: Male

DRUGS (4)
  1. BETAMETHASONE. [Suspect]
     Active Substance: BETAMETHASONE
     Indication: BACK PAIN
     Dosage: 4 MG, QD
     Route: 065
  2. BETAMETHASONE. [Suspect]
     Active Substance: BETAMETHASONE
     Dosage: 4 MG, QD
     Route: 030
  3. DICLOFENAC SODIUM. [Concomitant]
     Active Substance: DICLOFENAC SODIUM
     Indication: BACK PAIN
     Dosage: 75 MG, QD
     Route: 030
  4. THIOCOLCHICOSIDE [Concomitant]
     Active Substance: THIOCOLCHICOSIDE
     Indication: BACK PAIN
     Dosage: 4 MG, QD
     Route: 030

REACTIONS (7)
  - Tachycardia [Unknown]
  - Phonophobia [Unknown]
  - Drug withdrawal headache [Recovered/Resolved]
  - Vomiting [Unknown]
  - Photophobia [Unknown]
  - Steroid withdrawal syndrome [Unknown]
  - Product use in unapproved indication [Unknown]
